FAERS Safety Report 10433010 (Version 2)
Quarter: 2014Q3

REPORT INFORMATION
  Report Type: Report from Study
  Country: CA (occurrence: CA)
  Receive Date: 20140905
  Receipt Date: 20140905
  Transmission Date: 20150326
  Serious: Yes (Other)
  Sender: FDA-Public Use
  Company Number: CA-ABBVIE-14K-028-1220435-00

PATIENT
  Sex: Male
  Weight: 59.93 kg

DRUGS (3)
  1. KALETRA [Suspect]
     Active Substance: LOPINAVIR\RITONAVIR
     Indication: ANTIRETROVIRAL THERAPY
  2. TRUVADA [Concomitant]
     Active Substance: EMTRICITABINE\TENOFOVIR DISOPROXIL FUMARATE
     Indication: HIV INFECTION
     Dosage: 200/300 MG
     Route: 048
     Dates: start: 20130828
  3. KALETRA [Suspect]
     Active Substance: LOPINAVIR\RITONAVIR
     Dosage: 200MG/50MG 2 TABLETS
     Route: 048
     Dates: start: 20130828

REACTIONS (2)
  - Arthralgia [Not Recovered/Not Resolved]
  - Chondropathy [Not Recovered/Not Resolved]
